FAERS Safety Report 6222174-2 (Version None)
Quarter: 2009Q2

REPORT INFORMATION
  Report Type: 
  Country: None (occurrence: None)
  Receive Date: 20090611
  Receipt Date: 20090603
  Transmission Date: 20091009
  Serious: Yes (Other)
  Sender: FDA-Public Use
  Company Number: US-ROCHE-636755

PATIENT
  Sex: Female

DRUGS (1)
  1. BONIVA [Suspect]
     Indication: OSTEOPOROSIS
     Route: 048
     Dates: start: 20090201

REACTIONS (4)
  - ANAL INJURY [None]
  - CONSTIPATION [None]
  - RECTAL HAEMORRHAGE [None]
  - WOUND INFECTION [None]
